FAERS Safety Report 4920835-6 (Version None)
Quarter: 2006Q1

REPORT INFORMATION
  Report Type: 
  Country: None (occurrence: None)
  Receive Date: 20060217
  Receipt Date: 20060213
  Transmission Date: 20060701
  Serious: Yes (Other)
  Sender: FDA-Public Use
  Company Number: 2006021100

PATIENT
  Age: 55 Year
  Sex: Male

DRUGS (2)
  1. TAHOR (ATORVASTATIN) [Suspect]
     Indication: CARDIOVASCULAR EVENT PROPHYLAXIS
     Dosage: 10 MG (10 MG), ORAL
     Route: 048
     Dates: start: 20050101, end: 20060101
  2. AMLODIPINE [Concomitant]

REACTIONS (3)
  - CARDIAC DISORDER [None]
  - MYALGIA [None]
  - SCIATICA [None]
